FAERS Safety Report 16113887 (Version 1)
Quarter: 2019Q1

REPORT INFORMATION
  Report Type: Spontaneous
  Country: US (occurrence: US)
  Receive Date: 20190325
  Receipt Date: 20190325
  Transmission Date: 20190418
  Serious: Yes (Hospitalization, Other)
  Sender: FDA-Public Use
  Company Number: US-PFIZER INC-2019125736

PATIENT

DRUGS (2)
  1. CEFTRIAXONE SODIUM. [Suspect]
     Active Substance: CEFTRIAXONE SODIUM
     Indication: URINARY TRACT INFECTION
     Dosage: 1 G, UNK
     Route: 042
     Dates: start: 20181214, end: 20181214
  2. CEFTRIAXONE SODIUM. [Suspect]
     Active Substance: CEFTRIAXONE SODIUM
     Indication: NEPHROLITHIASIS

REACTIONS (4)
  - Dysphonia [Unknown]
  - Erythema [Unknown]
  - Throat irritation [Unknown]
  - Rash [Unknown]

NARRATIVE: CASE EVENT DATE: 20181214
